FAERS Safety Report 4411566-X (Version None)
Quarter: 2004Q3

REPORT INFORMATION
  Report Type: 
  Country: None (occurrence: None)
  Receive Date: 20040728
  Receipt Date: 20040728
  Transmission Date: 20050211
  Serious: Yes (Hospitalization)
  Sender: FDA-Public Use
  Company Number: None

PATIENT
  Sex: Male
  Weight: 102.5129 kg

DRUGS (14)
  1. GEMCITABINE [Suspect]
     Indication: PANCREATIC CARCINOMA
     Dosage: IV BOLUS, WEEKLY, 200 MG/M2
     Route: 040
     Dates: start: 20040524, end: 20040628
  2. FLUOROURACIL [Suspect]
     Indication: PANCREATIC CARCINOMA
     Dosage: CONTINUOUS IV INFUSION 5 DAYS PER WEEK (M-F) 200 MG/M2/DAY
     Route: 042
     Dates: start: 20040524, end: 20040701
  3. ATIVAN [Concomitant]
  4. ZOFRAN [Concomitant]
  5. ALLOPURINOL [Concomitant]
  6. ENBREL [Concomitant]
  7. FISH OIL [Concomitant]
  8. MULTI-VITAMIN [Concomitant]
  9. LIPITOR [Concomitant]
  10. NORVASC [Concomitant]
  11. METHOTREXATE [Concomitant]
  12. SULFASALAZINE [Concomitant]
  13. POTASSIUM GLUCONATE [Concomitant]
  14. METHOCARBAMOL [Concomitant]

REACTIONS (14)
  - ANAEMIA [None]
  - ASTHENIA [None]
  - ATRIAL FLUTTER [None]
  - CHEST WALL PAIN [None]
  - CHILLS [None]
  - DISEASE PROGRESSION [None]
  - HEADACHE [None]
  - HYPOTENSION [None]
  - ILIAC VEIN THROMBOSIS [None]
  - PULMONARY EMBOLISM [None]
  - PYREXIA [None]
  - RENAL FAILURE ACUTE [None]
  - TACHYARRHYTHMIA [None]
  - TACHYCARDIA [None]
